FAERS Safety Report 5059683-8 (Version None)
Quarter: 2006Q3

REPORT INFORMATION
  Report Type: 
  Country: None (occurrence: None)
  Receive Date: 20060718
  Receipt Date: 20060710
  Transmission Date: 20061208
  Serious: Yes (Hospitalization)
  Sender: FDA-Public Use
  Company Number: 200610654BFR

PATIENT
  Age: 68 Year
  Sex: Female
  Weight: 55 kg

DRUGS (2)
  1. CIFLOX (CIPROFLOXACIN) [Suspect]
     Dosage: INTRAVENOUS
     Route: 042
     Dates: end: 20060501
  2. ROCEPHIN [Suspect]
     Indication: ESCHERICHIA URINARY TRACT INFECTION
     Dosage: INTRAVENOUS
     Route: 042
     Dates: start: 20060509, end: 20060501

REACTIONS (8)
  - ANAEMIA [None]
  - CHOLESTASIS [None]
  - CYTOLYTIC HEPATITIS [None]
  - DIARRHOEA [None]
  - ESCHERICHIA URINARY TRACT INFECTION [None]
  - GENERAL PHYSICAL HEALTH DETERIORATION [None]
  - MALNUTRITION [None]
  - TYPE IV HYPERSENSITIVITY REACTION [None]
